FAERS Safety Report 5804579-4 (Version None)
Quarter: 2008Q3

REPORT INFORMATION
  Report Type: 
  Country: None (occurrence: None)
  Receive Date: 20080707
  Receipt Date: 20080707
  Transmission Date: 20090109
  Serious: Yes (Hospitalization)
  Sender: FDA-Public Use
  Company Number: None

PATIENT
  Age: 43 Year
  Sex: Male
  Weight: 92.9874 kg

DRUGS (1)
  1. TRAZODONE HCL [Suspect]
     Indication: DEPRESSION
     Dosage: 150MG BEDTIME ORAL
     Route: 048
     Dates: start: 20080425

REACTIONS (4)
  - ERECTION INCREASED [None]
  - FEELING ABNORMAL [None]
  - PAIN [None]
  - THROMBOSIS [None]
